FAERS Safety Report 5153640-9 (Version None)
Quarter: 2006Q4

REPORT INFORMATION
  Report Type: 
  Country: None (occurrence: None)
  Receive Date: 20061114
  Receipt Date: 20061031
  Transmission Date: 20070319
  Serious: Yes (Hospitalization)
  Sender: FDA-Public Use
  Company Number: 2006109499

PATIENT
  Age: 49 Year
  Sex: Female

DRUGS (5)
  1. SOLU-MEDROL [Suspect]
     Indication: DRUG USE FOR UNKNOWN INDICATION
     Dosage: INTRAVENOUS
     Route: 042
     Dates: start: 20060707, end: 20060713
  2. DEXCHLORPHENIRAMINE MALEATE [Suspect]
     Indication: DRUG USE FOR UNKNOWN INDICATION
     Dosage: INTRAVENOUS
     Route: 042
     Dates: start: 20060707, end: 20060713
  3. RANITIDINE [Suspect]
     Indication: DRUG USE FOR UNKNOWN INDICATION
     Dosage: INTRAVENOUS
     Route: 042
     Dates: start: 20060707, end: 20060713
  4. ONDANSETRON [Suspect]
     Indication: DRUG USE FOR UNKNOWN INDICATION
     Dosage: INTRAVENOUS
     Route: 042
     Dates: start: 20060707, end: 20060713
  5. PACLITAXEL [Suspect]
     Indication: BREAST NEOPLASM
     Dosage: INTRAVENOUS
     Route: 042
     Dates: start: 20060707, end: 20060713

REACTIONS (3)
  - NEUTROPENIA [None]
  - PAIN [None]
  - RASH ERYTHEMATOUS [None]
